FAERS Safety Report 4985804-9 (Version None)
Quarter: 2006Q2

REPORT INFORMATION
  Report Type: 
  Country: None (occurrence: None)
  Receive Date: 20060428
  Receipt Date: 20051206
  Transmission Date: 20061013
  Serious: No
  Sender: FDA-Public Use
  Company Number: US-GLAXOSMITHKLINE-A0584857A

PATIENT
  Age: 48 Year
  Sex: Female

DRUGS (5)
  1. AMERGE [Suspect]
     Indication: MIGRAINE
     Route: 048
     Dates: start: 20050101, end: 20050829
  2. IMITREX [Suspect]
     Indication: MIGRAINE
     Route: 065
  3. CALCIUM GLUCONATE [Concomitant]
  4. VITAMIN D [Concomitant]
  5. ESTROGENS SOL/INJ [Concomitant]

REACTIONS (2)
  - CHEST DISCOMFORT [None]
  - NAUSEA [None]
